FAERS Safety Report 6076662-2 (Version None)
Quarter: 2009Q1

REPORT INFORMATION
  Report Type: 
  Country: None (occurrence: None)
  Receive Date: 20090213
  Receipt Date: 20090203
  Transmission Date: 20090719
  Serious: Yes (Hospitalization, Other)
  Sender: FDA-Public Use
  Company Number: PHBS2009US00639

PATIENT

DRUGS (3)
  1. PROLEUKIN [Suspect]
     Indication: MALIGNANT NEOPLASM PROGRESSION
  2. SUNITINIB MALATE [Suspect]
     Dosage: 50 MG/ DAY
  3. SUNITINIB MALATE [Suspect]
     Dosage: 37.5 MG/ DAY FOR 4 WEEKS

REACTIONS (13)
  - ABDOMINAL PAIN [None]
  - BLOOD LACTIC ACID INCREASED [None]
  - CONFUSIONAL STATE [None]
  - DECREASED APPETITE [None]
  - DIARRHOEA [None]
  - FATIGUE [None]
  - HYPOTENSION [None]
  - HYPOTHYROIDISM [None]
  - INTESTINAL PERFORATION [None]
  - NAUSEA [None]
  - NEUTROPENIA [None]
  - PNEUMATOSIS INTESTINALIS [None]
  - STOMATITIS [None]
